FAERS Safety Report 20924831 (Version 2)
Quarter: 2022Q3

REPORT INFORMATION
  Report Type: Spontaneous
  Country: US (occurrence: US)
  Receive Date: 20220607
  Receipt Date: 20220922
  Transmission Date: 20221026
  Serious: No
  Sender: FDA-Public Use
  Company Number: US-PHARMAESSENTIA CORPORATION-US-2022-PEC-000511

PATIENT

DRUGS (4)
  1. BESREMI [Suspect]
     Active Substance: ROPEGINTERFERON ALFA-2B-NJFT
     Indication: Essential thrombocythaemia
     Dosage: 100 MICROGRAM, Q2W
     Route: 058
     Dates: start: 20220214
  2. BESREMI [Suspect]
     Active Substance: ROPEGINTERFERON ALFA-2B-NJFT
     Dosage: 250 MCG
     Route: 058
     Dates: start: 20220516
  3. CITALOPRAM [Concomitant]
     Active Substance: CITALOPRAM HYDROBROMIDE
     Indication: Depression
     Dosage: 20 MG, QD
     Route: 048
  4. ASPIRIN [Concomitant]
     Active Substance: ASPIRIN
     Indication: Anticoagulant therapy
     Dosage: UNK, QD
     Route: 065

REACTIONS (9)
  - Chest discomfort [Unknown]
  - Muscle tightness [Unknown]
  - COVID-19 [Unknown]
  - Off label use [Unknown]
  - Infected bite [Unknown]
  - Product temperature excursion issue [Unknown]
  - Vision blurred [Recovered/Resolved]
  - Headache [Unknown]
  - Platelet count decreased [Unknown]
